FAERS Safety Report 7974012-5 (Version None)
Quarter: 2011Q4

REPORT INFORMATION
  Report Type: 
  Country: None (occurrence: None)
  Receive Date: 20111213
  Receipt Date: 20111207
  Transmission Date: 20120403
  Serious: Yes (Death)
  Sender: FDA-Public Use
  Company Number: US-GLAXOSMITHKLINE-A0957593A

PATIENT
  Sex: Female

DRUGS (9)
  1. VOTRIENT [Suspect]
     Indication: PRODUCT USED FOR UNKNOWN INDICATION
     Dosage: 800MG PER DAY
     Route: 048
  2. PLAVIX [Concomitant]
  3. AMLODIPINE [Concomitant]
  4. GLYBURIDE [Concomitant]
  5. GABAPENTIN [Concomitant]
  6. ASPIRIN [Concomitant]
  7. ZOCOR [Concomitant]
  8. HYDROCODONE + HOMATROPINE SYRUP [Concomitant]
  9. CARVEDILOL [Concomitant]

REACTIONS (1)
  - DEATH [None]
